FAERS Safety Report 20214053 (Version 1)
Quarter: 2021Q4

REPORT INFORMATION
  Report Type: Spontaneous
  Country: US (occurrence: US)
  Receive Date: 20211221
  Receipt Date: 20211221
  Transmission Date: 20220303
  Serious: Yes (Hospitalization)
  Sender: FDA-Public Use
  Company Number: US-BRISTOL-MYERS SQUIBB COMPANY-BMS-2021-137848

PATIENT
  Sex: Male

DRUGS (1)
  1. ELIQUIS [Suspect]
     Active Substance: APIXABAN
     Indication: Embolism venous
     Dosage: UNAVAILABLE
     Route: 065
     Dates: start: 20211027

REACTIONS (2)
  - Injury [Unknown]
  - Prothrombin time ratio increased [Unknown]

NARRATIVE: CASE EVENT DATE: 20211201
